FAERS Safety Report 6299512-8 (Version None)
Quarter: 2009Q3

REPORT INFORMATION
  Report Type: 
  Country: None (occurrence: None)
  Receive Date: 20090806
  Receipt Date: 20090731
  Transmission Date: 20100115
  Serious: Yes (Hospitalization)
  Sender: FDA-Public Use
  Company Number: US-ASTRAZENECA-2009UW21614

PATIENT
  Sex: Male
  Weight: 77.1 kg

DRUGS (1)
  1. SEROQUEL XR [Suspect]
     Route: 048

REACTIONS (4)
  - INCOHERENT [None]
  - PARANOIA [None]
  - SCHIZOPHRENIA [None]
  - SUICIDE ATTEMPT [None]
